FAERS Safety Report 25111807 (Version 1)
Quarter: 2025Q1

REPORT INFORMATION
  Report Type: Spontaneous
  Country: US (occurrence: US)
  Receive Date: 20250324
  Receipt Date: 20250324
  Transmission Date: 20250409
  Serious: Yes (Hospitalization, Other)
  Sender: MYLAN
  Company Number: US-MYLANLABS-2025M1023893

PATIENT
  Age: 63 Year
  Sex: Male

DRUGS (16)
  1. BUDESONIDE [Suspect]
     Active Substance: BUDESONIDE
     Indication: Pouchitis
  2. BUDESONIDE [Suspect]
     Active Substance: BUDESONIDE
     Route: 065
  3. BUDESONIDE [Suspect]
     Active Substance: BUDESONIDE
     Route: 065
  4. BUDESONIDE [Suspect]
     Active Substance: BUDESONIDE
  5. MESALAMINE [Suspect]
     Active Substance: MESALAMINE
     Indication: Diarrhoea
  6. MESALAMINE [Suspect]
     Active Substance: MESALAMINE
     Route: 065
  7. MESALAMINE [Suspect]
     Active Substance: MESALAMINE
     Route: 065
  8. MESALAMINE [Suspect]
     Active Substance: MESALAMINE
  9. UNSPECIFIED INGREDIENT [Suspect]
     Active Substance: UNSPECIFIED INGREDIENT
     Indication: Diarrhoea
  10. UNSPECIFIED INGREDIENT [Suspect]
     Active Substance: UNSPECIFIED INGREDIENT
     Route: 065
  11. UNSPECIFIED INGREDIENT [Suspect]
     Active Substance: UNSPECIFIED INGREDIENT
     Route: 065
  12. UNSPECIFIED INGREDIENT [Suspect]
     Active Substance: UNSPECIFIED INGREDIENT
  13. CHOLESTYRAMINE [Suspect]
     Active Substance: CHOLESTYRAMINE
     Indication: Diarrhoea
  14. CHOLESTYRAMINE [Suspect]
     Active Substance: CHOLESTYRAMINE
     Route: 065
  15. CHOLESTYRAMINE [Suspect]
     Active Substance: CHOLESTYRAMINE
     Route: 065
  16. CHOLESTYRAMINE [Suspect]
     Active Substance: CHOLESTYRAMINE

REACTIONS (4)
  - Drug ineffective for unapproved indication [Unknown]
  - Rebound effect [Recovered/Resolved]
  - Pouchitis [Recovered/Resolved]
  - Off label use [Unknown]
